FAERS Safety Report 22644838 (Version 1)
Quarter: 2023Q2

REPORT INFORMATION
  Report Type: Report from Study
  Country: US (occurrence: US)
  Receive Date: 20230627
  Receipt Date: 20230627
  Transmission Date: 20230721
  Serious: Yes (Other)
  Sender: FDA-Public Use
  Company Number: US-ABBVIE-5301563

PATIENT
  Age: 59 Year
  Sex: Female
  Weight: 64.41 kg

DRUGS (1)
  1. HUMIRA [Suspect]
     Active Substance: ADALIMUMAB
     Indication: Colitis ulcerative
     Route: 058
     Dates: start: 202204, end: 20230529

REACTIONS (6)
  - Anogenital warts [Recovered/Resolved]
  - Erythema [Unknown]
  - Cellulitis [Recovered/Resolved]
  - Colitis ulcerative [Unknown]
  - Immunodeficiency [Not Recovered/Not Resolved]
  - Localised infection [Unknown]

NARRATIVE: CASE EVENT DATE: 20220801
